FAERS Safety Report 14588123 (Version 1)
Quarter: 2018Q1

REPORT INFORMATION
  Report Type: Spontaneous
  Country: GR (occurrence: GR)
  Receive Date: 20180301
  Receipt Date: 20180301
  Transmission Date: 20180509
  Serious: Yes (Other)
  Sender: FDA-Public Use
  Company Number: GR-JNJFOC-20180237882

PATIENT
  Age: 57 Year
  Sex: Female

DRUGS (10)
  1. INFLIXIMAB, RECOMBINANT [Suspect]
     Active Substance: INFLIXIMAB
     Indication: JOINT EFFUSION
     Route: 042
     Dates: start: 20160801
  2. SALOPYRINE [Suspect]
     Active Substance: SULFASALAZINE
     Indication: JOINT EFFUSION
     Route: 065
  3. INFLIXIMAB, RECOMBINANT [Suspect]
     Active Substance: INFLIXIMAB
     Indication: JOINT EFFUSION
     Route: 042
  4. ADALIMUMAB [Suspect]
     Active Substance: ADALIMUMAB
     Indication: JOINT EFFUSION
     Route: 065
     Dates: start: 20160101
  5. METHOTREXATE SODIUM. [Suspect]
     Active Substance: METHOTREXATE SODIUM
     Indication: JOINT EFFUSION
     Route: 065
     Dates: start: 20160101
  6. SALOPYRINE [Suspect]
     Active Substance: SULFASALAZINE
     Indication: JOINT EFFUSION
     Route: 065
     Dates: start: 20160801
  7. GLUCOPHAGE [Concomitant]
     Active Substance: METFORMIN HYDROCHLORIDE
     Indication: DIABETES MELLITUS
     Route: 065
  8. FOSAVANCE [Suspect]
     Active Substance: ALENDRONATE SODIUM\CHOLECALCIFEROL
     Indication: JOINT EFFUSION
     Route: 065
     Dates: start: 20160101
  9. JANUMET [Suspect]
     Active Substance: METFORMIN HYDROCHLORIDE\SITAGLIPTIN PHOSPHATE
     Indication: JOINT EFFUSION
     Route: 065
     Dates: start: 20160101
  10. PREZOLON [Suspect]
     Active Substance: PREDNISOLONE
     Indication: JOINT EFFUSION
     Route: 065
     Dates: start: 20160101

REACTIONS (10)
  - Urinary tract infection [Unknown]
  - Pain [Unknown]
  - Immobile [Unknown]
  - Fall [Unknown]
  - Sacroiliitis [Unknown]
  - Joint effusion [Unknown]
  - Osteoporotic fracture [Unknown]
  - Bone marrow oedema [Unknown]
  - Off label use [Unknown]
  - Product use in unapproved indication [Unknown]

NARRATIVE: CASE EVENT DATE: 20160701
